FAERS Safety Report 5664106-1 (Version None)
Quarter: 2008Q1

REPORT INFORMATION
  Report Type: 
  Country: None (occurrence: None)
  Receive Date: 20080314
  Receipt Date: 20080304
  Transmission Date: 20080703
  Serious: Yes (Hospitalization, Other)
  Sender: FDA-Public Use
  Company Number: GB-JNJFOC-20070904137

PATIENT
  Sex: Male
  Weight: 110 kg

DRUGS (11)
  1. INFLIXIMAB [Suspect]
     Indication: DRUG USE FOR UNKNOWN INDICATION
     Route: 042
  2. PANADEINE [Suspect]
     Indication: DRUG USE FOR UNKNOWN INDICATION
  3. ACETAMINOPHEN [Suspect]
  4. ACETAMINOPHEN [Suspect]
     Indication: DRUG USE FOR UNKNOWN INDICATION
  5. ASACOL [Concomitant]
  6. AZATHIOPRINE [Concomitant]
  7. CIPROFLOXACIN [Concomitant]
  8. FLUOXETINE [Concomitant]
  9. HYOSCINE HBR HYT [Concomitant]
  10. LANSOPRAZOLE [Concomitant]
  11. PARAFFIN [Concomitant]

REACTIONS (3)
  - EUPHORIC MOOD [None]
  - GAMMA-GLUTAMYLTRANSFERASE INCREASED [None]
  - MULTIPLE DRUG OVERDOSE [None]
